FAERS Safety Report 7451152-0 (Version None)
Quarter: 2011Q2

REPORT INFORMATION
  Report Type: 
  Country: None (occurrence: None)
  Receive Date: 20110422
  Receipt Date: 20110413
  Transmission Date: 20111010
  Serious: Yes (Hospitalization)
  Sender: FDA-Public Use
  Company Number: DSA_45417_2011

PATIENT
  Sex: Female
  Weight: 61 kg

DRUGS (7)
  1. MULTAQ [Suspect]
     Indication: ATRIAL FIBRILLATION
     Dosage: (400 MG BID ORAL)
     Route: 048
     Dates: start: 20101212, end: 20101228
  2. LOPRESSOR [Suspect]
     Indication: PRODUCT USED FOR UNKNOWN INDICATION
     Dosage: (50 MG BID)
     Dates: end: 20101224
  3. SYNTHROID [Concomitant]
  4. DILTIAZEM [Suspect]
     Dosage: (180 MG, DF)
     Dates: end: 20101224
  5. VITAMIN D [Concomitant]
  6. ASPIRIN [Concomitant]
  7. COUMADIN [Concomitant]

REACTIONS (7)
  - URTICARIA [None]
  - FEELING HOT [None]
  - PLEURAL EFFUSION [None]
  - EYE SWELLING [None]
  - SWELLING [None]
  - ARRHYTHMIA [None]
  - HYPERSENSITIVITY [None]
